FAERS Safety Report 25562589 (Version 1)
Quarter: 2025Q3

REPORT INFORMATION
  Report Type: Report from Study
  Country: US (occurrence: US)
  Receive Date: 20250716
  Receipt Date: 20250716
  Transmission Date: 20251021
  Serious: Yes (Hospitalization, Other)
  Sender: VERONA PHARMA
  Company Number: US-VERONA PHARMA-VER-004312

PATIENT
  Age: 78 Year
  Sex: Male

DRUGS (2)
  1. OHTUVAYRE [Suspect]
     Active Substance: ENSIFENTRINE
     Indication: Chronic obstructive pulmonary disease
     Dosage: 3 MILLIGRAM, BID
     Dates: start: 20250316, end: 20250323
  2. OHTUVAYRE [Suspect]
     Active Substance: ENSIFENTRINE
     Dosage: 3 MILLIGRAM, BID

REACTIONS (3)
  - Bladder disorder [Unknown]
  - Atrial fibrillation [Unknown]
  - Pneumonia [Recovered/Resolved]

NARRATIVE: CASE EVENT DATE: 20250324
